FAERS Safety Report 12457891 (Version 8)
Quarter: 2019Q3

REPORT INFORMATION
  Report Type: Report from Study
  Country: DE (occurrence: DE)
  Receive Date: 20160612
  Receipt Date: 20190729
  Transmission Date: 20191004
  Serious: Yes (Hospitalization)
  Sender: FDA-Public Use
  Company Number: PHHO2016DE000548

PATIENT
  Age: 16 Year
  Sex: Male
  Weight: 48 kg

DRUGS (8)
  1. EVEROLIMUS. [Suspect]
     Active Substance: EVEROLIMUS
     Indication: RENAL TRANSPLANT
     Dosage: 0.8 MG, BID
     Route: 048
     Dates: start: 20150806
  2. EVEROLIMUS. [Suspect]
     Active Substance: EVEROLIMUS
     Dosage: 1.7 MG, BID
     Route: 048
  3. PREDNISOLONE. [Concomitant]
     Active Substance: PREDNISOLONE
     Dosage: 500 MG/M2, UNK
     Route: 042
     Dates: start: 20160104, end: 20160109
  4. PREDNISOLONE. [Concomitant]
     Active Substance: PREDNISOLONE
     Indication: RENAL TRANSPLANT
     Dosage: 5 MG, QD
     Route: 048
     Dates: start: 20150710
  5. BELATACEPT [Concomitant]
     Active Substance: BELATACEPT
     Indication: GRAFT LOSS
     Dosage: 250 MG, QW
     Route: 042
     Dates: start: 20160708, end: 20161031
  6. NEORAL [Suspect]
     Active Substance: CYCLOSPORINE
     Indication: RENAL TRANSPLANT
     Dosage: 80 MG, BID
     Route: 048
     Dates: start: 20150710, end: 20160708
  7. EVEROLIMUS. [Suspect]
     Active Substance: EVEROLIMUS
     Dosage: 1.5 MG, BID
     Route: 048
     Dates: start: 20160708
  8. PREDNISOLONE. [Concomitant]
     Active Substance: PREDNISOLONE
     Dosage: 450 MG, UNK
     Route: 065
     Dates: start: 20160708

REACTIONS (4)
  - Blood creatine increased [Recovering/Resolving]
  - Kidney transplant rejection [Recovering/Resolving]
  - Dehydration [Recovered/Resolved]
  - Graft loss [Not Recovered/Not Resolved]

NARRATIVE: CASE EVENT DATE: 20160104
